FAERS Safety Report 19861079 (Version 1)
Quarter: 2021Q3

REPORT INFORMATION
  Report Type: Spontaneous
  Country: BR (occurrence: BR)
  Receive Date: 20210921
  Receipt Date: 20210921
  Transmission Date: 20211014
  Serious: Yes (Other)
  Sender: FDA-Public Use
  Company Number: NVSC2021BR212824

PATIENT
  Sex: Female

DRUGS (3)
  1. ESTRADOT [Suspect]
     Active Substance: ESTRADIOL
     Dosage: 50 UG
     Route: 065
  2. ESTRADOT [Suspect]
     Active Substance: ESTRADIOL
     Dosage: 50 UG (TWO OF 25 UG (1 MONTH AGO))
     Route: 065
     Dates: start: 2021, end: 2021
  3. ESTRADOT [Suspect]
     Active Substance: ESTRADIOL
     Indication: PRODUCT USED FOR UNKNOWN INDICATION
     Dosage: 100 UG
     Route: 065
     Dates: start: 201909

REACTIONS (6)
  - Cerebrovascular accident [Recovered/Resolved]
  - Pancreatitis [Recovered/Resolved]
  - Fall [Recovered/Resolved]
  - Drug ineffective [Unknown]
  - COVID-19 [Recovered/Resolved]
  - Wrong technique in product usage process [Unknown]

NARRATIVE: CASE EVENT DATE: 201909
